FAERS Safety Report 9007917 (Version 1)
Quarter: 2013Q1

REPORT INFORMATION
  Report Type: Spontaneous
  Country: US (occurrence: US)
  Receive Date: 20130111
  Receipt Date: 20130111
  Transmission Date: 20140127
  Serious: Yes (Other)
  Sender: FDA-Public Use
  Company Number: US-009507513-0911USA00622

PATIENT
  Age: 9 Year
  Sex: Male
  Weight: 29.48 kg

DRUGS (1)
  1. SINGULAIR [Suspect]
     Indication: ASTHMA EXERCISE INDUCED
     Dosage: 1 DF, QD
     Route: 048
     Dates: start: 20081001, end: 20090325

REACTIONS (6)
  - Crying [Recovered/Resolved]
  - Dry mouth [Recovered/Resolved]
  - Educational problem [Recovered/Resolved]
  - Anxiety [Recovered/Resolved]
  - Depressed mood [Recovered/Resolved]
  - Insomnia [Recovered/Resolved]
